FAERS Safety Report 10663462 (Version 2)
Quarter: 2014Q4

REPORT INFORMATION
  Report Type: Report from Study
  Country: BR (occurrence: BR)
  Receive Date: 20141219
  Receipt Date: 20141219
  Transmission Date: 20150529
  Serious: Yes (Death, Hospitalization, Other)
  Sender: FDA-Public Use
  Company Number: BR-ABBVIE-14P-020-1278033-00

PATIENT
  Age: 77 Year
  Sex: Female

DRUGS (1)
  1. HUMIRA [Suspect]
     Active Substance: ADALIMUMAB
     Indication: RHEUMATOID ARTHRITIS
     Route: 058
     Dates: start: 20090915, end: 201301

REACTIONS (5)
  - Pyrexia [Unknown]
  - Septic shock [Fatal]
  - Lung neoplasm malignant [Fatal]
  - Diabetes mellitus [Fatal]
  - Depression [Unknown]

NARRATIVE: CASE EVENT DATE: 201301
